FAERS Safety Report 4478925-0 (Version None)
Quarter: 2004Q4

REPORT INFORMATION
  Report Type: 
  Country: None (occurrence: None)
  Receive Date: 20041014
  Receipt Date: 20041001
  Transmission Date: 20050328
  Serious: Yes (Life-Threatening, Hospitalization, Disabling, Other)
  Sender: FDA-Public Use
  Company Number: MAG-2004-0000281

PATIENT
  Age: 49 Year
  Sex: Female

DRUGS (4)
  1. THEOPHYLLINE [Suspect]
     Indication: ASTHMA
     Dosage: 800 MG, DAILY, ORAL
     Route: 048
     Dates: start: 20040602, end: 20040624
  2. NIFEDIPINE [Suspect]
     Indication: HYPERTENSION
     Dosage: 80 MG, DAILY, ORAL
     Route: 048
     Dates: start: 20040602, end: 20040624
  3. METYLDOPA (METHYLDOPA) [Concomitant]
  4. FUROSEMIDE [Concomitant]

REACTIONS (22)
  - ACIDOSIS [None]
  - AMMONIA INCREASED [None]
  - ANAEMIA [None]
  - APALLIC SYNDROME [None]
  - CARDIAC ARREST [None]
  - DEPRESSED LEVEL OF CONSCIOUSNESS [None]
  - DYSPNOEA [None]
  - ENCEPHALITIS HERPES [None]
  - FEELING ABNORMAL [None]
  - GENITAL HAEMORRHAGE [None]
  - HAEMODIALYSIS [None]
  - HEPATIC FAILURE [None]
  - IATROGENIC INJURY [None]
  - INFECTION [None]
  - INTRACRANIAL PRESSURE INCREASED [None]
  - LOSS OF CONSCIOUSNESS [None]
  - MEDICATION ERROR [None]
  - OVERDOSE [None]
  - PNEUMONIA [None]
  - PULMONARY CONGESTION [None]
  - STRIDOR [None]
  - TREATMENT NONCOMPLIANCE [None]
